FAERS Safety Report 14639328 (Version 1)
Quarter: 2018Q1

REPORT INFORMATION
  Report Type: Spontaneous
  Country: US (occurrence: US)
  Receive Date: 20180315
  Receipt Date: 20180315
  Transmission Date: 20180509
  Serious: No
  Sender: FDA-Public Use
  Company Number: US-ENDO PHARMACEUTICALS INC-2017-003376

PATIENT
  Age: 76 Year
  Sex: Female

DRUGS (1)
  1. PROMETHAZINE HYDROCHLORIDE WITH CODEINE SYRUP [Suspect]
     Active Substance: CODEINE PHOSPHATE\PROMETHAZINE HYDROCHLORIDE
     Indication: SLEEP DISORDER
     Dosage: UNK UNK, UNKNOWN
     Route: 065
     Dates: start: 20170404, end: 2017

REACTIONS (4)
  - Blood pressure increased [Unknown]
  - Drug ineffective for unapproved indication [Unknown]
  - Product colour issue [Unknown]
  - Off label use [Unknown]

NARRATIVE: CASE EVENT DATE: 2017
